FAERS Safety Report 14959411 (Version 3)
Quarter: 2018Q2

REPORT INFORMATION
  Report Type: Spontaneous
  Country: US (occurrence: US)
  Receive Date: 20180531
  Receipt Date: 20180626
  Transmission Date: 20180711
  Serious: Yes (Hospitalization)
  Sender: FDA-Public Use
  Company Number: US-OTSUKA-2018_013254

PATIENT
  Age: 46 Year
  Sex: Female

DRUGS (3)
  1. ABILIFY [Suspect]
     Active Substance: ARIPIPRAZOLE
     Indication: BIPOLAR I DISORDER
     Dosage: 10MG TO 15MG
     Route: 065
     Dates: end: 201604
  2. ABILIFY MAINTENA [Suspect]
     Active Substance: ARIPIPRAZOLE
     Indication: BIPOLAR I DISORDER
     Dosage: 400 MG, QM
     Route: 065
     Dates: start: 201604
  3. LEXAPRO [Suspect]
     Active Substance: ESCITALOPRAM OXALATE
     Indication: PRODUCT USED FOR UNKNOWN INDICATION
     Dosage: 5 MG, UNK
     Route: 065
     Dates: start: 20180515, end: 20180521

REACTIONS (14)
  - Weight increased [Not Recovered/Not Resolved]
  - Tooth disorder [Unknown]
  - Body mass index abnormal [Unknown]
  - Hyporesponsive to stimuli [Not Recovered/Not Resolved]
  - Abnormal behaviour [Unknown]
  - Thinking abnormal [Unknown]
  - Treatment noncompliance [Unknown]
  - Disease recurrence [Unknown]
  - Hunger [Unknown]
  - Obesity [Not Recovered/Not Resolved]
  - Somnolence [Unknown]
  - Drug ineffective [Unknown]
  - Food craving [Not Recovered/Not Resolved]
  - Increased appetite [Unknown]

NARRATIVE: CASE EVENT DATE: 201805
